FAERS Safety Report 13554147 (Version 1)
Quarter: 2017Q2

REPORT INFORMATION
  Report Type: Spontaneous
  Country: US (occurrence: US)
  Receive Date: 20170517
  Receipt Date: 20170517
  Transmission Date: 20170830
  Serious: No
  Sender: FDA-Public Use
  Company Number: US-MISSION PHARMACAL COMPANY-2020855

PATIENT
  Age: 13 Year
  Sex: Female

DRUGS (1)
  1. THIOLA [Suspect]
     Active Substance: TIOPRONIN
     Indication: AMINO ACID CATABOLISM DISORDER
     Route: 065
     Dates: start: 20170412

REACTIONS (4)
  - Drug dose omission [Unknown]
  - Educational problem [None]
  - Nausea [Unknown]
  - Dizziness [Unknown]
